FAERS Safety Report 19246194 (Version 1)
Quarter: 2021Q2

REPORT INFORMATION
  Report Type: Spontaneous
  Country: US (occurrence: US)
  Receive Date: 20210512
  Receipt Date: 20210512
  Transmission Date: 20210717
  Serious: No
  Sender: FDA-Public Use
  Company Number: US-ELI_LILLY_AND_COMPANY-US202102004517

PATIENT
  Age: 6 Year
  Sex: Male

DRUGS (4)
  1. HUMALOG JUNIOR KWIKPEN [Suspect]
     Active Substance: INSULIN LISPRO
     Indication: TYPE 1 DIABETES MELLITUS
     Dosage: UNK UNK, UNKNOWN
     Route: 065
     Dates: start: 2016
  2. HUMALOG [Suspect]
     Active Substance: INSULIN LISPRO
     Dosage: 10 U, PRN
     Route: 058
  3. HUMALOG [Suspect]
     Active Substance: INSULIN LISPRO
     Indication: TYPE 1 DIABETES MELLITUS
     Dosage: 10 U, UNKNOWN
     Route: 058
     Dates: start: 20200203
  4. HUMALOG [Suspect]
     Active Substance: INSULIN LISPRO
     Dosage: 10 U, PRN
     Route: 058

REACTIONS (5)
  - Blood glucose increased [Recovering/Resolving]
  - Drug ineffective [Unknown]
  - Blood glucose increased [Recovered/Resolved]
  - Wrong technique in product usage process [Recovering/Resolving]
  - Blood ketone body increased [Recovering/Resolving]

NARRATIVE: CASE EVENT DATE: 20210203
